FAERS Safety Report 8165595-3 (Version None)
Quarter: 2012Q1

REPORT INFORMATION
  Report Type: 
  Country: None (occurrence: None)
  Receive Date: 20120223
  Receipt Date: 20120223
  Transmission Date: 20120608
  Serious: Yes (Death)
  Sender: FDA-Public Use
  Company Number: None

PATIENT
  Age: 66 Year
  Sex: Male
  Weight: 111.1313 kg

DRUGS (1)
  1. ALLOPURINOL [Suspect]
     Indication: GOUT
     Dosage: 1 TIME A DAY FOR 7 DAY MOUTH
     Route: 048
     Dates: start: 20110622, end: 20110628

REACTIONS (2)
  - GUN SHOT WOUND [None]
  - COMPLETED SUICIDE [None]
